FAERS Safety Report 18597193 (Version 3)
Quarter: 2020Q4

REPORT INFORMATION
  Report Type: Spontaneous
  Country: BR (occurrence: BR)
  Receive Date: 20201209
  Receipt Date: 20201228
  Transmission Date: 20210114
  Serious: Yes (Death, Other)
  Sender: FDA-Public Use
  Company Number: BR-SA-2020SA207219

PATIENT

DRUGS (2)
  1. RANITIDINE. [Suspect]
     Active Substance: RANITIDINE
     Indication: GASTRIC INFECTION
     Dosage: 2 DF
     Route: 065
  2. HYOSCINE BUTYLBROMIDE/METAMIZOLE SODIUM [Suspect]
     Active Substance: BUTYLSCOPOLAMINE BROMIDE\METAMIZOLE SODIUM
     Indication: GASTRIC INFECTION
     Dosage: 2 DF, QD
     Route: 065

REACTIONS (4)
  - Death [Fatal]
  - Blood glucose abnormal [Unknown]
  - Blood pressure decreased [Unknown]
  - Syncope [Unknown]
